FAERS Safety Report 9115867 (Version 1)
Quarter: 2013Q1

REPORT INFORMATION
  Report Type: Spontaneous
  Country: US (occurrence: US)
  Receive Date: 20130225
  Receipt Date: 20130225
  Transmission Date: 20140127
  Serious: Yes (Hospitalization)
  Sender: FDA-Public Use
  Company Number: US-GLAXOSMITHKLINE-A1012491A

PATIENT
  Age: 46 Year
  Sex: Female

DRUGS (7)
  1. VENTOLIN HFA [Suspect]
     Indication: ASTHMA
     Dosage: 2PUFF AS REQUIRED
     Route: 055
     Dates: start: 1999
  2. SYMBICORT [Concomitant]
  3. STEROID [Concomitant]
     Route: 042
  4. MUCINEX [Concomitant]
  5. ZOLOFT [Concomitant]
  6. COUGH SYRUP [Concomitant]
  7. INFLUENZA VACCINE [Concomitant]

REACTIONS (8)
  - Lung infection [Not Recovered/Not Resolved]
  - Bronchospasm [Unknown]
  - Chronic obstructive pulmonary disease [Unknown]
  - Dyspnoea [Unknown]
  - Productive cough [Unknown]
  - Haemoptysis [Unknown]
  - Upper respiratory tract infection [Unknown]
  - Asthma [Unknown]
